FAERS Safety Report 9844816 (Version 3)
Quarter: 2014Q1

REPORT INFORMATION
  Report Type: Spontaneous
  Country: FR (occurrence: FR)
  Receive Date: 20140127
  Receipt Date: 20140306
  Transmission Date: 20141002
  Serious: Yes (Hospitalization, Other)
  Sender: FDA-Public Use
  Company Number: FR-ROCHE-1334243

PATIENT
  Sex: Male
  Weight: 60 kg

DRUGS (12)
  1. ERIVEDGE [Suspect]
     Indication: BASAL CELL CARCINOMA
     Dosage: DISCONTINUED DUE TO ACUTE RENAL FAILURE ON AN UNSPCEIFIED DATE.
     Route: 048
     Dates: start: 20131206
  2. PREVISCAN (FRANCE) [Concomitant]
     Route: 065
  3. TAHOR [Concomitant]
     Route: 065
  4. AMLOR [Concomitant]
     Route: 065
  5. APROVEL [Concomitant]
     Route: 065
  6. LASILIX [Concomitant]
     Route: 065
  7. NAFTIDROFURYL [Concomitant]
     Route: 065
  8. ALLOPURINOL [Concomitant]
     Route: 065
  9. INEXIUM [Concomitant]
     Route: 065
  10. UVEDOSE [Concomitant]
     Route: 065
  11. CALCIDIA [Concomitant]
     Route: 065
  12. ACUPAN [Concomitant]

REACTIONS (6)
  - Renal failure acute [Unknown]
  - Lung disorder [Unknown]
  - Fall [Unknown]
  - General physical health deterioration [Recovering/Resolving]
  - Decreased appetite [Unknown]
  - Blood pressure increased [Unknown]
